FAERS Safety Report 23366658 (Version 1)
Quarter: 2024Q1

REPORT INFORMATION
  Report Type: Spontaneous
  Country: US (occurrence: None)
  Receive Date: 20240104
  Receipt Date: 20240104
  Transmission Date: 20240410
  Serious: Yes (Life-Threatening, Hospitalization)
  Sender: FDA-Public Use
  Company Number: None

PATIENT
  Age: 62 Year
  Sex: Female
  Weight: 108 kg

DRUGS (1)
  1. OZEMPIC [Suspect]
     Active Substance: SEMAGLUTIDE
     Indication: Diabetes mellitus
     Route: 058
     Dates: start: 20231029, end: 20231210

REACTIONS (6)
  - Diarrhoea [None]
  - Dizziness [None]
  - Loss of consciousness [None]
  - Gastritis bacterial [None]
  - Gastric ulcer [None]
  - Gastrointestinal necrosis [None]

NARRATIVE: CASE EVENT DATE: 20231211
